FAERS Safety Report 7488487-1 (Version None)
Quarter: 2011Q2

REPORT INFORMATION
  Report Type: 
  Country: None (occurrence: None)
  Receive Date: 20110518
  Receipt Date: 20110428
  Transmission Date: 20111010
  Serious: Yes (Other)
  Sender: FDA-Public Use
  Company Number: A0927542A

PATIENT
  Age: 40 Year
  Sex: Male
  Weight: 72.7 kg

DRUGS (2)
  1. NICODERM CQ [Suspect]
     Indication: SMOKING CESSATION THERAPY
     Dosage: 7MG PER DAY
     Route: 062
     Dates: start: 20110415, end: 20110426
  2. NICODERM CQ [Suspect]
     Indication: SMOKING CESSATION THERAPY
     Dosage: 14MG PER DAY
     Route: 062

REACTIONS (2)
  - FEELING ABNORMAL [None]
  - HALLUCINATION [None]
